FAERS Safety Report 21400193 (Version 1)
Quarter: 2022Q4

REPORT INFORMATION
  Report Type: Spontaneous
  Country: TR (occurrence: TR)
  Receive Date: 20221002
  Receipt Date: 20221002
  Transmission Date: 20230113
  Serious: Yes (Hospitalization, Other)
  Sender: FDA-Public Use
  Company Number: TR-ABBOTT-2022A-1353289

PATIENT
  Age: 69 Year
  Sex: Male

DRUGS (23)
  1. TARKA FORTE [Suspect]
     Active Substance: TRANDOLAPRIL\VERAPAMIL HYDROCHLORIDE
     Indication: Product used for unknown indication
     Dosage: 1X1, DAILY
     Route: 048
     Dates: start: 20220915, end: 20220916
  2. AKSEF [CEFUROXIME SODIUM] [Concomitant]
     Indication: Product used for unknown indication
     Dosage: 2X1, DAILY
  3. TRANDOLAPRIL [Concomitant]
     Active Substance: TRANDOLAPRIL
     Indication: Product used for unknown indication
     Dosage: 1X1, DAILY
  4. D COLEFOR [Concomitant]
     Indication: Product used for unknown indication
  5. FLAGYL [Concomitant]
     Active Substance: METRONIDAZOLE\METRONIDAZOLE HYDROCHLORIDE
     Indication: Product used for unknown indication
     Dosage: 2X1, DAILY
  6. NAZOFIX [Concomitant]
     Indication: Product used for unknown indication
     Dosage: 2X2, DAILY
  7. A FERIN SINUS [Concomitant]
     Indication: Product used for unknown indication
     Dosage: 2X1, DAILY
  8. CANDEXIL PLUS [Concomitant]
     Indication: Product used for unknown indication
     Dosage: 1X1, DAILY
  9. DEXOFEN [DEXTROPROPOXYPHENE NAPSILATE] [Concomitant]
     Indication: Product used for unknown indication
     Dosage: 2X1, DAILY
  10. OTILONIUM BROMIDE [Concomitant]
     Active Substance: OTILONIUM BROMIDE
     Indication: Product used for unknown indication
     Dosage: 2X1, DAILY
  11. KATARIN [CHLORPHENAMINE MALEATE;OXOLAMINE CITRATE;PARACETAMOL] [Concomitant]
     Indication: Product used for unknown indication
     Dosage: 2X1, DAILY
  12. JANUMET [Concomitant]
     Active Substance: METFORMIN HYDROCHLORIDE\SITAGLIPTIN PHOSPHATE
     Indication: Product used for unknown indication
     Dosage: 2X1, DAILY
  13. KAPRIL [CAPTOPRIL] [Concomitant]
     Indication: Product used for unknown indication
     Dosage: 1X1, DAILY
  14. APIKOBAL PLUS [Concomitant]
     Indication: Product used for unknown indication
     Dosage: 1X1, DAILY
  15. AMOKLAVIN BID [Concomitant]
     Indication: Product used for unknown indication
     Dosage: 2X1, DAILY
  16. LARGOPEN [AMOXICILLIN TRIHYDRATE] [Concomitant]
     Indication: Product used for unknown indication
     Dosage: 2X1, DAILY
  17. OKSABRON [Concomitant]
     Indication: Product used for unknown indication
     Dosage: TIME INTERVAL: 0.33333333 DAYS: 3X1, DAILY
  18. VERMIDON [CAFFEINE;PARACETAMOL] [Concomitant]
     Indication: Product used for unknown indication
     Dosage: TIME INTERVAL: 0.33333333 DAYS: 3X1, DAILY
  19. FLUDEX [Concomitant]
     Indication: Product used for unknown indication
     Dosage: 1X1, DAILY
  20. LEVOPRONT [Concomitant]
     Indication: Product used for unknown indication
     Dosage: 2X1, DAILY
  21. KLAMOKS BID [Concomitant]
     Indication: Product used for unknown indication
     Dosage: 2X1, DAILY
  22. ESOMEPRAZOLE MAGNESIUM [Concomitant]
     Active Substance: ESOMEPRAZOLE MAGNESIUM
     Indication: Product used for unknown indication
     Dosage: 1X1, DAILY
  23. METFORMIN HYDROCHLORIDE [Concomitant]
     Active Substance: METFORMIN HYDROCHLORIDE
     Indication: Product used for unknown indication
     Dosage: 2X1, DAILY

REACTIONS (2)
  - Atrioventricular block second degree [Recovered/Resolved]
  - Chest pain [Recovered/Resolved]

NARRATIVE: CASE EVENT DATE: 20220901
